FAERS Safety Report 8569990 (Version 3)
Quarter: 2015Q4

REPORT INFORMATION
  Report Type: Spontaneous
  Country: FR (occurrence: FR)
  Receive Date: 20120518
  Receipt Date: 20151002
  Transmission Date: 20160305
  Serious: Yes (Other)
  Sender: FDA-Public Use
  Company Number: FR-ROCHE-1068774

PATIENT
  Sex: Female
  Weight: 75 kg

DRUGS (3)
  1. ZELBORAF [Suspect]
     Active Substance: VEMURAFENIB
     Route: 048
     Dates: start: 20120528, end: 20130208
  2. ZELBORAF [Suspect]
     Active Substance: VEMURAFENIB
     Route: 048
     Dates: start: 201210
  3. ZELBORAF [Suspect]
     Active Substance: VEMURAFENIB
     Indication: METASTATIC MALIGNANT MELANOMA
     Dosage: TEMPORARILY DISCONTINUED
     Route: 048
     Dates: start: 20120406

REACTIONS (4)
  - Rash maculo-papular [Recovering/Resolving]
  - Rash erythematous [Recovering/Resolving]
  - Cholestasis [Not Recovered/Not Resolved]
  - Dermal cyst [Recovering/Resolving]

NARRATIVE: CASE EVENT DATE: 20120426
